FAERS Safety Report 23885567 (Version 4)
Quarter: 2025Q1

REPORT INFORMATION
  Report Type: Spontaneous
  Country: US (occurrence: US)
  Receive Date: 20240522
  Receipt Date: 20250114
  Transmission Date: 20250408
  Serious: Yes (Other)
  Sender: PFIZER
  Company Number: US-PFIZER INC-PV202400066502

PATIENT
  Age: 45 Year
  Sex: Male

DRUGS (2)
  1. GLIPIZIDE [Suspect]
     Active Substance: GLIPIZIDE
  2. ALPRAZOLAM [Suspect]
     Active Substance: ALPRAZOLAM

REACTIONS (2)
  - Hypoglycaemia [Unknown]
  - Drug abuse [Unknown]
